FAERS Safety Report 25391341 (Version 1)
Quarter: 2025Q2

REPORT INFORMATION
  Report Type: Report from Study
  Country: US (occurrence: US)
  Receive Date: 20250603
  Receipt Date: 20250603
  Transmission Date: 20250716
  Serious: Yes (Hospitalization)
  Sender: GILEAD
  Company Number: US-GILEAD-2025-0715609

PATIENT
  Sex: Female

DRUGS (1)
  1. SELADELPAR [Suspect]
     Active Substance: SELADELPAR
     Indication: Product used for unknown indication
     Route: 048

REACTIONS (2)
  - Hepatic enzyme increased [Unknown]
  - Pruritus [Unknown]
